FAERS Safety Report 14815183 (Version 2)
Quarter: 2018Q2

REPORT INFORMATION
  Report Type: Spontaneous
  Country: JP (occurrence: JP)
  Receive Date: 20180426
  Receipt Date: 20180507
  Transmission Date: 20180711
  Serious: Yes (Death)
  Sender: FDA-Public Use
  Company Number: JP-PFIZER INC-2018171387

PATIENT
  Age: 69 Year
  Sex: Female
  Weight: 44 kg

DRUGS (9)
  1. 5-FU /00098801/ [Suspect]
     Active Substance: FLUOROURACIL
     Indication: NEOPLASM MALIGNANT
     Dosage: 3500 MG, UNK (ONCE IN 2DAYS) 3500 MG/BODY/D1-2 (2617.8 MG/M2/D1-2)
     Route: 041
     Dates: start: 20170201
  2. LEVOFOLINATE CALCIUM [Suspect]
     Active Substance: LEVOLEUCOVORIN CALCIUM
     Indication: NEOPLASM MALIGNANT
     Dosage: 275 MG, 1X/DAY (275 MG/BODY (205.7 MG/M2))
     Route: 041
     Dates: start: 20170201, end: 20170621
  3. AVASTIN [Suspect]
     Active Substance: BEVACIZUMAB
     Indication: NEOPLASM MALIGNANT
     Dosage: 275 MG, 1X/DAY (ONCE A DAY)
     Route: 041
     Dates: start: 20170522, end: 20170522
  4. CAMPTO [Suspect]
     Active Substance: IRINOTECAN
     Indication: NEOPLASM MALIGNANT
     Dosage: 200 MG, 1X/DAY (200 MG/BODY (149.6 MG/M2))
     Route: 041
     Dates: start: 20170201
  5. 5-FU /00098801/ [Suspect]
     Active Substance: FLUOROURACIL
     Dosage: 3500 MG, UNK(ONCE IN 2DAYS) 3500 MG/BODY/D1-2 (2617.8 MG/M2/D1-2)
     Route: 041
     Dates: start: 20170522
  6. CAMPTO [Suspect]
     Active Substance: IRINOTECAN
     Dosage: 200 MG, 1X/DAY  (200 MG/BODY (149.6 MG/M2))
     Route: 041
     Dates: start: 20170522, end: 20170522
  7. 5-FU /00098801/ [Suspect]
     Active Substance: FLUOROURACIL
     Dosage: 3500 MG, UNK (ONCE IN 2DAYS) 3500 MG/BODY/D1-2 (2617.8 MG/M2/D1-2)
     Route: 041
     Dates: start: 20170621, end: 20170621
  8. CAMPTO [Suspect]
     Active Substance: IRINOTECAN
     Dosage: 200 MG, 1X/DAY  (200 MG/BODY (149.6 MG/M2))
     Route: 041
     Dates: start: 20170621, end: 20170621
  9. AVASTIN [Suspect]
     Active Substance: BEVACIZUMAB
     Dosage: 275 MG, 1X/DAY (ONCE A DAY)
     Route: 041
     Dates: start: 20170621, end: 20170621

REACTIONS (3)
  - Large intestine perforation [Fatal]
  - White blood cell count decreased [Unknown]
  - C-reactive protein increased [Unknown]

NARRATIVE: CASE EVENT DATE: 20170624
